FAERS Safety Report 12383774 (Version 1)
Quarter: 2016Q2

REPORT INFORMATION
  Report Type: Spontaneous
  Country: JP (occurrence: JP)
  Receive Date: 20160519
  Receipt Date: 20160519
  Transmission Date: 20160815
  Serious: Yes (Other)
  Sender: FDA-Public Use
  Company Number: JP-BRISTOL-MYERS SQUIBB COMPANY-BMS-2016-038215

PATIENT
  Age: 85 Year
  Sex: Female
  Weight: 46 kg

DRUGS (5)
  1. PREDNISOLONE. [Concomitant]
     Active Substance: PREDNISOLONE
     Indication: PRODUCT USED FOR UNKNOWN INDICATION
     Dosage: 40 MG, UNK
     Route: 065
     Dates: end: 20100705
  2. DEXAMETHASONE. [Concomitant]
     Active Substance: DEXAMETHASONE
     Indication: PRODUCT USED FOR UNKNOWN INDICATION
     Dosage: 8 MG, UNK
     Route: 065
     Dates: start: 20100714
  3. SPRYCEL [Suspect]
     Active Substance: DASATINIB
     Indication: ACUTE LYMPHOCYTIC LEUKAEMIA
     Dosage: 70 MG, BID
     Route: 048
     Dates: start: 20100628, end: 20100705
  4. SPRYCEL [Suspect]
     Active Substance: DASATINIB
     Dosage: 70 MG, QD
     Route: 048
     Dates: start: 20100714, end: 20100813
  5. SPRYCEL [Suspect]
     Active Substance: DASATINIB
     Dosage: 50 MG, QD
     Route: 065
     Dates: start: 20100901

REACTIONS (5)
  - Weight increased [Unknown]
  - Restlessness [Recovered/Resolved]
  - Blood creatinine increased [Recovered/Resolved]
  - Pleural effusion [Unknown]
  - Neutrophil count decreased [Unknown]

NARRATIVE: CASE EVENT DATE: 20100705
